FAERS Safety Report 25610607 (Version 2)
Quarter: 2025Q3

REPORT INFORMATION
  Report Type: Spontaneous
  Country: US (occurrence: US)
  Receive Date: 20250728
  Receipt Date: 20250807
  Transmission Date: 20251020
  Serious: No
  Sender: ASTELLAS
  Company Number: US-ASTELLAS-2025-AER-039799

PATIENT
  Age: 52 Year
  Sex: Female

DRUGS (2)
  1. VEOZAH [Suspect]
     Active Substance: FEZOLINETANT
     Indication: Menopausal symptoms
     Dosage: 45MG ONCE DAILY
     Route: 050
     Dates: start: 202410
  2. SYNTHROID [Concomitant]
     Active Substance: LEVOTHYROXINE SODIUM
     Indication: Product used for unknown indication
     Route: 065

REACTIONS (5)
  - Vulvovaginal dryness [Unknown]
  - Night sweats [Unknown]
  - Mood altered [Unknown]
  - Alopecia [Unknown]
  - Libido decreased [Unknown]

NARRATIVE: CASE EVENT DATE: 20250101
